FAERS Safety Report 20322712 (Version 1)
Quarter: 2022Q1

REPORT INFORMATION
  Report Type: Spontaneous
  Country: BR (occurrence: None)
  Receive Date: 20220111
  Receipt Date: 20220111
  Transmission Date: 20220424
  Serious: Yes (Other)
  Sender: FDA-Public Use
  Company Number: 2022A007553

PATIENT
  Age: 25 Year
  Sex: Female
  Weight: 47 kg

DRUGS (1)
  1. SYMBICORT [Suspect]
     Active Substance: BUDESONIDE\FORMOTEROL FUMARATE DIHYDRATE
     Indication: Asthma
     Dosage: 160/4.5 MCG
     Route: 055
     Dates: start: 2013

REACTIONS (4)
  - COVID-19 [Unknown]
  - Depression [Not Recovered/Not Resolved]
  - Discouragement [Not Recovered/Not Resolved]
  - Asthma [Unknown]

NARRATIVE: CASE EVENT DATE: 20130101
